FAERS Safety Report 4844499-5 (Version None)
Quarter: 2005Q4

REPORT INFORMATION
  Report Type: 
  Country: None (occurrence: None)
  Receive Date: 20051203
  Receipt Date: 20051122
  Transmission Date: 20060501
  Serious: Yes (Other)
  Sender: FDA-Public Use
  Company Number: PHBS2005TW17246

PATIENT

DRUGS (1)
  1. AREDIA [Suspect]

REACTIONS (2)
  - INJECTION SITE SWELLING [None]
  - INJECTION SITE ULCER [None]
